FAERS Safety Report 23150405 (Version 2)
Quarter: 2024Q3

REPORT INFORMATION
  Report Type: Spontaneous
  Country: US (occurrence: US)
  Receive Date: 20231106
  Receipt Date: 20240827
  Transmission Date: 20241017
  Serious: Yes (Death, Other)
  Sender: ABBVIE
  Company Number: US-ABBVIE-5476807

PATIENT

DRUGS (5)
  1. VENETOCLAX [Suspect]
     Active Substance: VENETOCLAX
     Indication: Plasma cell myeloma refractory
     Route: 048
  2. VENETOCLAX [Suspect]
     Active Substance: VENETOCLAX
     Indication: Plasma cell myeloma refractory
     Route: 048
  3. KYPROLIS [Suspect]
     Active Substance: CARFILZOMIB
     Indication: Plasma cell myeloma refractory
     Route: 065
  4. KYPROLIS [Suspect]
     Active Substance: CARFILZOMIB
     Indication: Plasma cell myeloma refractory
     Route: 065
  5. DEXAMETHASONE [Suspect]
     Active Substance: DEXAMETHASONE
     Indication: Plasma cell myeloma refractory
     Route: 065

REACTIONS (18)
  - Infection [Fatal]
  - Neutropenia [Unknown]
  - Disease progression [Unknown]
  - Vomiting [Unknown]
  - Lymphopenia [Unknown]
  - Diarrhoea [Unknown]
  - Off label use [Unknown]
  - Thrombocytopenia [Unknown]
  - COVID-19 [Unknown]
  - Sepsis [Unknown]
  - Cardiac disorder [Fatal]
  - Fatigue [Unknown]
  - Therapeutic product effect incomplete [Unknown]
  - Renal injury [Unknown]
  - Pneumonia [Unknown]
  - Anaemia [Unknown]
  - Nausea [Unknown]
  - Unevaluable event [Fatal]
